FAERS Safety Report 11517515 (Version 5)
Quarter: 2016Q2

REPORT INFORMATION
  Report Type: Report from Study
  Country: US (occurrence: US)
  Receive Date: 20150917
  Receipt Date: 20160526
  Transmission Date: 20160815
  Serious: Yes (Hospitalization, Other)
  Sender: FDA-Public Use
  Company Number: US-SA-2015SA097000

PATIENT
  Age: 38 Year
  Sex: Female

DRUGS (1)
  1. LEMTRADA [Suspect]
     Active Substance: ALEMTUZUMAB
     Indication: MULTIPLE SCLEROSIS
     Route: 041
     Dates: start: 20150601, end: 20150605

REACTIONS (20)
  - Dizziness [Not Recovered/Not Resolved]
  - Head discomfort [Unknown]
  - Pneumonia [Recovering/Resolving]
  - Lower extremity mass [Not Recovered/Not Resolved]
  - Somnolence [Unknown]
  - Slow speech [Unknown]
  - Hypoaesthesia [Unknown]
  - Heart rate increased [Unknown]
  - Feeling abnormal [Unknown]
  - Muscle spasms [Not Recovered/Not Resolved]
  - Spinal disorder [Unknown]
  - Headache [Unknown]
  - Multiple sclerosis relapse [Unknown]
  - Gait disturbance [Unknown]
  - Dehydration [Unknown]
  - Throat tightness [Unknown]
  - Chest discomfort [Unknown]
  - Peripheral swelling [Unknown]
  - Hypotension [Unknown]
  - Memory impairment [Unknown]

NARRATIVE: CASE EVENT DATE: 2015
